FAERS Safety Report 9571372 (Version 1)
Quarter: 2013Q4

REPORT INFORMATION
  Report Type: Spontaneous
  Country: DE (occurrence: DE)
  Receive Date: 20131001
  Receipt Date: 20131001
  Transmission Date: 20140711
  Serious: Yes (Hospitalization)
  Sender: FDA-Public Use
  Company Number: DE-RANBAXY-2013R1-73546

PATIENT
  Age: 20 Year
  Sex: Female
  Weight: 74 kg

DRUGS (4)
  1. FLUOXETINE [Suspect]
     Indication: DEPRESSION
     Dosage: 10-20 MG, DAILY
     Route: 065
     Dates: start: 20130801, end: 20130817
  2. MOCLOBEMIDE [Suspect]
     Indication: DEPRESSION
     Dosage: UNK
     Route: 065
     Dates: start: 20130819, end: 20130820
  3. DOMINAL [Concomitant]
     Indication: NIGHTMARE
     Dosage: UNK
     Route: 065
     Dates: start: 20130801, end: 20130819
  4. TAVOR [Concomitant]
     Indication: AGITATION
     Route: 065

REACTIONS (2)
  - Euphoric mood [Recovering/Resolving]
  - Loss of consciousness [Recovering/Resolving]
